FAERS Safety Report 19436759 (Version 2)
Quarter: 2021Q3

REPORT INFORMATION
  Report Type: Spontaneous
  Country: US (occurrence: US)
  Receive Date: 20210618
  Receipt Date: 20210702
  Transmission Date: 20211014
  Serious: Yes (Death)
  Sender: FDA-Public Use
  Company Number: US-UNICHEM PHARMACEUTICALS (USA) INC-UCM202106-000542

PATIENT
  Age: 29 Year
  Sex: Male

DRUGS (8)
  1. PALIPERIDONE. [Concomitant]
     Active Substance: PALIPERIDONE
     Indication: SUICIDAL IDEATION
  2. ESCITALOPRAM [Concomitant]
     Active Substance: ESCITALOPRAM OXALATE
     Indication: ACUTE PSYCHOSIS
  3. DIVALPROEX SODIUM. [Suspect]
     Active Substance: DIVALPROEX SODIUM
     Indication: ACUTE PSYCHOSIS
  4. DIVALPROEX SODIUM. [Suspect]
     Active Substance: DIVALPROEX SODIUM
     Indication: SUICIDAL IDEATION
  5. ESCITALOPRAM [Concomitant]
     Active Substance: ESCITALOPRAM OXALATE
     Indication: SUICIDAL IDEATION
  6. CARBAMAZEPINE. [Concomitant]
     Active Substance: CARBAMAZEPINE
     Indication: SUICIDAL IDEATION
  7. PALIPERIDONE. [Concomitant]
     Active Substance: PALIPERIDONE
     Indication: DELUSION
     Dosage: UNKNOWN
  8. CARBAMAZEPINE. [Concomitant]
     Active Substance: CARBAMAZEPINE
     Indication: DELUSION
     Dosage: UNKNOWN

REACTIONS (8)
  - Encephalopathy [Fatal]
  - Brain oedema [Fatal]
  - Hyperammonaemic crisis [Fatal]
  - Seizure [Fatal]
  - Vomiting [Fatal]
  - Blood lactic acid increased [Fatal]
  - Nausea [Fatal]
  - Diarrhoea [Fatal]
